FAERS Safety Report 8090344-7 (Version None)
Quarter: 2012Q1

REPORT INFORMATION
  Report Type: 
  Country: None (occurrence: None)
  Receive Date: 20120129
  Receipt Date: 20111119
  Transmission Date: 20120608
  Serious: No
  Sender: FDA-Public Use
  Company Number: US-ABBOTT-11P-163-0875975-00

PATIENT
  Age: 27 Year
  Sex: Female

DRUGS (5)
  1. ALPRAZOLAM [Concomitant]
     Indication: ANXIETY
  2. VITAMIN D [Concomitant]
     Indication: PRODUCT USED FOR UNKNOWN INDICATION
  3. ASACOL [Concomitant]
     Indication: PRODUCT USED FOR UNKNOWN INDICATION
  4. ONDANSETRON HCL [Concomitant]
     Indication: NAUSEA
  5. HUMIRA [Suspect]
     Indication: COLITIS
     Dates: start: 20110908

REACTIONS (2)
  - SOMNOLENCE [None]
  - FEELING HOT [None]
